FAERS Safety Report 4951699-2 (Version None)
Quarter: 2006Q1

REPORT INFORMATION
  Report Type: 
  Country: None (occurrence: None)
  Receive Date: 20060322
  Receipt Date: 20060322
  Transmission Date: 20060701
  Serious: Yes (Hospitalization)
  Sender: FDA-Public Use
  Company Number: None

PATIENT
  Sex: Male
  Weight: 91.6266 kg

DRUGS (7)
  1. IRESSA [Suspect]
     Indication: NON-SMALL CELL LUNG CANCER
     Dosage: 250 MG QD PO
     Route: 048
     Dates: start: 20060119, end: 20060207
  2. TOPROL-XL [Concomitant]
  3. MULTIVITAMIN [Concomitant]
  4. PROTONIX [Concomitant]
  5. LISINOPRIL [Concomitant]
  6. NORVASC [Concomitant]
  7. LIPITOR [Concomitant]

REACTIONS (12)
  - BLOOD ALBUMIN DECREASED [None]
  - BLOOD CREATININE INCREASED [None]
  - BLOOD POTASSIUM DECREASED [None]
  - BLOOD PRESSURE DECREASED [None]
  - BLOOD UREA INCREASED [None]
  - CATHETER SITE ERYTHEMA [None]
  - DECREASED APPETITE [None]
  - DIARRHOEA [None]
  - HAEMATOCRIT DECREASED [None]
  - NAUSEA [None]
  - RESPIRATORY RATE INCREASED [None]
  - VOMITING [None]
